FAERS Safety Report 24155639 (Version 1)
Quarter: 2024Q3

REPORT INFORMATION
  Report Type: Spontaneous
  Country: DE (occurrence: DE)
  Receive Date: 20240731
  Receipt Date: 20240731
  Transmission Date: 20241017
  Serious: Yes (Other)
  Sender: TEVA
  Company Number: DE-Medice Arzneimittel-KinecteenSPO30030

PATIENT
  Age: 12 Year
  Sex: Male
  Weight: 35 kg

DRUGS (1)
  1. METHYLPHENIDATE [Suspect]
     Active Substance: METHYLPHENIDATE
     Indication: Attention deficit hyperactivity disorder
     Dosage: IN THE MORNING
     Route: 048
     Dates: start: 20231221

REACTIONS (2)
  - Leukopenia [Not Recovered/Not Resolved]
  - Electrocardiogram PR shortened [Not Recovered/Not Resolved]

NARRATIVE: CASE EVENT DATE: 20240501
